FAERS Safety Report 7564615-4 (Version None)
Quarter: 2011Q2

REPORT INFORMATION
  Report Type: 
  Country: None (occurrence: None)
  Receive Date: 20110622
  Receipt Date: 20100809
  Transmission Date: 20111010
  Serious: Yes (Death)
  Sender: FDA-Public Use
  Company Number: US-MYLANLABS-2010S1012272

PATIENT
  Age: 82 Year
  Sex: Male

DRUGS (17)
  1. CLONAZEPAM [Concomitant]
  2. DEPAKOTE [Concomitant]
  3. ADVAIR DISKUS 100/50 [Concomitant]
  4. ALLOPURINOL [Concomitant]
  5. SEROQUEL [Concomitant]
  6. BACTRIM [Concomitant]
  7. DOCUSATE [Concomitant]
  8. SPIRONOLACTONE [Concomitant]
  9. NEXIUM [Concomitant]
  10. ASPIRIN [Concomitant]
  11. LORAZEPAM [Concomitant]
  12. ALBUTEROL SULFATE AUTOHALER [Concomitant]
     Dosage: PRN
  13. CLOZAPINE [Suspect]
     Dates: start: 20100621
  14. AMIODARONE HCL [Concomitant]
     Dosage: 6DAYS A WEEK
  15. LEVOTHYROXINE SODIUM [Concomitant]
  16. MILK OF MAGNESIA TAB [Concomitant]
  17. VITAMIN TAB [Concomitant]

REACTIONS (1)
  - DEATH [None]
